FAERS Safety Report 7379752-7 (Version None)
Quarter: 2011Q1

REPORT INFORMATION
  Report Type: 
  Country: None (occurrence: None)
  Receive Date: 20110329
  Receipt Date: 20110315
  Transmission Date: 20110831
  Serious: Yes (Hospitalization, Other)
  Sender: FDA-Public Use
  Company Number: US-RANBAXY-2011RR-43252

PATIENT
  Sex: Female

DRUGS (7)
  1. ADVIL PM [Suspect]
     Indication: INSOMNIA
     Route: 065
  2. METRONIDAZOLE [Concomitant]
     Indication: INFECTION
     Dosage: 500 MG, UNK
     Route: 065
     Dates: start: 20091010, end: 20091019
  3. LEVAQUIN [Suspect]
     Indication: INFECTION
     Dosage: 500 MG, QD
     Route: 048
     Dates: start: 20091013, end: 20091019
  4. FLAGYL [Concomitant]
     Indication: INFECTION
     Dosage: UNK
     Route: 048
     Dates: start: 20091010
  5. IBUPROFEN [Suspect]
     Indication: ILL-DEFINED DISORDER
     Route: 065
  6. AMBIEN [Suspect]
     Indication: INSOMNIA
     Dosage: 12.5 MG, UNK
     Route: 048
     Dates: start: 20090406, end: 20091019
  7. COGENTIN [Concomitant]
     Indication: MOVEMENT DISORDER
     Dosage: UNK
     Route: 048
     Dates: start: 20091001

REACTIONS (4)
  - INSOMNIA [None]
  - DRUG INTERACTION [None]
  - PARANOIA [None]
  - PSYCHOTIC DISORDER [None]
